FAERS Safety Report 9389106 (Version 1)
Quarter: 2013Q3

REPORT INFORMATION
  Report Type: Spontaneous
  Country: US (occurrence: US)
  Receive Date: 20130708
  Receipt Date: 20130708
  Transmission Date: 20140515
  Serious: No
  Sender: FDA-Public Use
  Company Number: US-AMGEN-USASP2013039580

PATIENT
  Sex: 0

DRUGS (5)
  1. ENBREL [Suspect]
     Indication: PRODUCT USED FOR UNKNOWN INDICATION
     Dosage: UNK
     Route: 065
  2. HUMIRA [Concomitant]
     Dosage: 40 MG, UNK
     Route: 065
  3. CLONOPIN [Concomitant]
     Indication: ANXIETY
     Dosage: UNK
     Route: 065
  4. ZOLOFT [Concomitant]
     Dosage: UNK
     Route: 065
  5. ZEGERID                            /06027801/ [Concomitant]

REACTIONS (6)
  - Anxiety [Unknown]
  - Fatigue [Unknown]
  - Drug ineffective [Unknown]
  - Feeling abnormal [Unknown]
  - Pain [Unknown]
  - Upper respiratory tract infection [Unknown]
